FAERS Safety Report 16036227 (Version 1)
Quarter: 2019Q1

REPORT INFORMATION
  Report Type: Spontaneous
  Country: US (occurrence: US)
  Receive Date: 20190305
  Receipt Date: 20190305
  Transmission Date: 20190418
  Serious: No
  Sender: FDA-Public Use
  Company Number: US-ALLERGAN-1822694US

PATIENT
  Sex: Female
  Weight: 72.56 kg

DRUGS (3)
  1. ESTRACE [Suspect]
     Active Substance: ESTRADIOL
     Indication: VULVOVAGINAL DRYNESS
     Dosage: 1 G, 3 TIMES A WEEK
     Route: 067
     Dates: start: 201711
  2. ESTRACE [Suspect]
     Active Substance: ESTRADIOL
     Dosage: UNK UNK, QPM
     Route: 067
  3. PREMARIN [Concomitant]
     Active Substance: ESTROGENS, CONJUGATED
     Dosage: UNK
     Route: 065

REACTIONS (4)
  - Vulvovaginal burning sensation [Not Recovered/Not Resolved]
  - Inappropriate schedule of product administration [Unknown]
  - Vulvovaginal discomfort [Not Recovered/Not Resolved]
  - Pruritus [Not Recovered/Not Resolved]
